FAERS Safety Report 23342767 (Version 1)
Quarter: 2023Q4

REPORT INFORMATION
  Report Type: Report from Study
  Country: US (occurrence: US)
  Receive Date: 20231227
  Receipt Date: 20231227
  Transmission Date: 20240110
  Serious: Yes (Other)
  Sender: FDA-Public Use
  Company Number: US-UCBSA-2023060534

PATIENT
  Sex: Female

DRUGS (1)
  1. MIDAZOLAM [Suspect]
     Active Substance: MIDAZOLAM
     Indication: Seizure
     Dosage: 5MG SPRAY INTO NOSTRIL, REPEAT AFTER 10MIN IF NEED

REACTIONS (4)
  - Seizure [Not Recovered/Not Resolved]
  - Inability to afford medication [Unknown]
  - Product availability issue [Unknown]
  - Therapy interrupted [Unknown]
